FAERS Safety Report 10193635 (Version 2)
Quarter: 2014Q2

REPORT INFORMATION
  Report Type: Spontaneous
  Country: IT (occurrence: IT)
  Receive Date: 20140524
  Receipt Date: 20140530
  Transmission Date: 20141212
  Serious: Yes (Hospitalization)
  Sender: FDA-Public Use
  Company Number: PHHY2014IT060162

PATIENT
  Age: 63 Year
  Sex: Male

DRUGS (6)
  1. RAMIPRIL [Suspect]
     Indication: HYPERTENSION
     Dosage: 5 MG, QD
     Route: 048
     Dates: start: 20130101, end: 20140504
  2. LASIX [Suspect]
     Dosage: 50 MG, QD
     Route: 048
     Dates: start: 20131027, end: 20140504
  3. CARDIOASPIRIN [Concomitant]
     Dosage: 100 MG, UNK
  4. IVABRADINE [Concomitant]
  5. BISOPROLOL [Concomitant]
  6. OMEPRAZOLE [Concomitant]

REACTIONS (2)
  - Dehydration [Recovering/Resolving]
  - Renal failure acute [Recovering/Resolving]
